FAERS Safety Report 20868974 (Version 1)
Quarter: 2022Q2

REPORT INFORMATION
  Report Type: Spontaneous
  Country: US (occurrence: US)
  Receive Date: 20220524
  Receipt Date: 20220524
  Transmission Date: 20220721
  Serious: No
  Sender: FDA-Public Use
  Company Number: US-MYLANLABS-2022M1036136

PATIENT
  Sex: Male
  Weight: 74.84 kg

DRUGS (1)
  1. FENTANYL TRANSDERMAL SYSTEM [Suspect]
     Active Substance: FENTANYL
     Indication: Pain
     Dosage: 50 MICROGRAM, QH (EVERY 48 HOURS)
     Route: 062

REACTIONS (1)
  - Drug ineffective [Unknown]
